FAERS Safety Report 24706224 (Version 3)
Quarter: 2025Q1

REPORT INFORMATION
  Report Type: Spontaneous
  Country: US (occurrence: US)
  Receive Date: 20241206
  Receipt Date: 20250108
  Transmission Date: 20250408
  Serious: Yes (Other)
  Sender: INCYTE
  Company Number: US-INCYTE CORPORATION-2024IN012684

PATIENT

DRUGS (1)
  1. JAKAFI [Suspect]
     Active Substance: RUXOLITINIB
     Indication: Product used for unknown indication
     Dosage: 5 MILLIGRAM, BID
     Route: 048

REACTIONS (4)
  - Foot fracture [Unknown]
  - Product dose omission in error [Unknown]
  - Blister [Unknown]
  - Fatigue [Unknown]

NARRATIVE: CASE EVENT DATE: 20241001
